FAERS Safety Report 7410447-7 (Version None)
Quarter: 2011Q2

REPORT INFORMATION
  Report Type: 
  Country: None (occurrence: None)
  Receive Date: 20110413
  Receipt Date: 20110405
  Transmission Date: 20111010
  Serious: Yes (Hospitalization, Other)
  Sender: FDA-Public Use
  Company Number: BE-BIOGENIDEC-2010BI041066

PATIENT
  Age: 53 Year
  Sex: Male

DRUGS (2)
  1. CORTICOSTEROIDS [Concomitant]
  2. TYSABRI [Suspect]
     Indication: MULTIPLE SCLEROSIS
     Route: 042
     Dates: start: 20080901, end: 20101010

REACTIONS (1)
  - DIVERTICULITIS [None]
